FAERS Safety Report 7943391-7 (Version None)
Quarter: 2011Q4

REPORT INFORMATION
  Report Type: 
  Country: None (occurrence: None)
  Receive Date: 20111128
  Receipt Date: 20111118
  Transmission Date: 20120403
  Serious: Yes (Hospitalization)
  Sender: FDA-Public Use
  Company Number: US-VERTEX PHARMACEUTICALS INC.-AE-2011-003930

PATIENT
  Sex: Female
  Weight: 91 kg

DRUGS (14)
  1. INCIVEK [Suspect]
     Route: 048
  2. VITAMIN B-12 [Concomitant]
     Route: 048
  3. PEGASYS [Concomitant]
     Indication: HEPATITIS C
     Route: 058
     Dates: start: 20111021
  4. MAGNESIUM SULFATE [Concomitant]
     Route: 048
  5. LISINOPRIL AND HYDROCHLOROTHIAZIDE [Concomitant]
  6. INCIVEK [Suspect]
     Indication: HEPATITIS C
     Route: 048
     Dates: start: 20111021
  7. RIBASPHERE [Concomitant]
     Indication: HEPATITIS C
     Route: 048
     Dates: start: 20111021
  8. METFORMIN HCL [Concomitant]
  9. VITAMIN D [Concomitant]
  10. SOMA [Concomitant]
  11. OXYCODONE HCL [Concomitant]
  12. VALIUM [Concomitant]
     Route: 048
  13. LEXAPRO [Concomitant]
     Route: 048
  14. MILK THISTLE [Concomitant]
     Route: 048

REACTIONS (6)
  - HYPOTENSION [None]
  - DIARRHOEA [None]
  - FATIGUE [None]
  - PRURITUS [None]
  - NAUSEA [None]
  - DEHYDRATION [None]
